FAERS Safety Report 17432146 (Version 2)
Quarter: 2020Q1

REPORT INFORMATION
  Report Type: Report from Study
  Country: US (occurrence: US)
  Receive Date: 20200218
  Receipt Date: 20200306
  Transmission Date: 20200409
  Serious: No
  Sender: FDA-Public Use
  Company Number: US-SA-2020SA037432

PATIENT
  Age: 54 Year
  Sex: Female

DRUGS (3)
  1. DUPILUMAB [Suspect]
     Active Substance: DUPILUMAB
     Indication: DERMATITIS ATOPIC
     Dosage: 200 MG, QOW
     Dates: start: 2018
  2. DUPILUMAB [Suspect]
     Active Substance: DUPILUMAB
     Dosage: 600 MG, 1X
     Route: 058
     Dates: start: 20180905, end: 20180905
  3. DUPILUMAB [Suspect]
     Active Substance: DUPILUMAB
     Dosage: 300 MG, QOW
     Route: 058

REACTIONS (8)
  - Wrong technique in device usage process [Unknown]
  - Agitation [Unknown]
  - Rash [Unknown]
  - Injection site pain [Unknown]
  - Dermatitis atopic [Unknown]
  - Product use issue [Unknown]
  - Drug ineffective [Unknown]
  - Injection site discomfort [Unknown]

NARRATIVE: CASE EVENT DATE: 2018
